FAERS Safety Report 13126325 (Version 5)
Quarter: 2019Q1

REPORT INFORMATION
  Report Type: Spontaneous
  Country: US (occurrence: US)
  Receive Date: 20170118
  Receipt Date: 20190131
  Transmission Date: 20190417
  Serious: Yes (Hospitalization, Other)
  Sender: FDA-Public Use
  Company Number: US-ASTRAZENECA-2017SE03327

PATIENT
  Age: 17635 Day
  Sex: Male
  Weight: 95.1 kg

DRUGS (51)
  1. SIMVASTATIN. [Concomitant]
     Active Substance: SIMVASTATIN
     Dates: start: 20150908
  2. AMLODIPINE [Concomitant]
     Active Substance: AMLODIPINE BESYLATE
  3. PREVACID [Concomitant]
     Active Substance: LANSOPRAZOLE
     Route: 065
     Dates: start: 20041105
  4. METHYLPREDNISOLONE. [Concomitant]
     Active Substance: METHYLPREDNISOLONE
     Dosage: 5MG/ML DAILY
     Route: 065
     Dates: start: 20120523
  5. SITAGLIPTIN [Concomitant]
     Active Substance: SITAGLIPTIN
     Route: 048
  6. CHOLECALCIFEROL [Concomitant]
     Active Substance: CHOLECALCIFEROL
     Dosage: 5,000 INT_UNIT (1 CAP) BY MOUTH ONCE DAILY
     Route: 048
  7. VITAMIN E [Concomitant]
     Active Substance: .ALPHA.-TOCOPHEROL
     Dosage: 400 INTI UNITS ORAL CAPSULE
     Route: 048
  8. METOPROLOL. [Concomitant]
     Active Substance: METOPROLOL
     Dates: start: 20150515
  9. ACYCLOVIR. [Concomitant]
     Active Substance: ACYCLOVIR
  10. FOLIC ACID. [Concomitant]
     Active Substance: FOLIC ACID
     Route: 048
  11. LEXAPRO [Concomitant]
     Active Substance: ESCITALOPRAM OXALATE
     Route: 048
     Dates: start: 20120130
  12. PROTONIX [Concomitant]
     Active Substance: PANTOPRAZOLE SODIUM
     Route: 065
     Dates: start: 20120524
  13. MERREM [Concomitant]
     Active Substance: MEROPENEM
     Route: 042
     Dates: start: 20120521
  14. ATIVAN [Concomitant]
     Active Substance: LORAZEPAM
     Dosage: 1.0MG ONCE/SINGLE ADMINISTRATION
     Route: 042
     Dates: start: 20120515
  15. CALCIUM-VITAMIN D [Concomitant]
     Active Substance: CALCIUM\VITAMIN D
     Route: 048
  16. NEXIUM [Suspect]
     Active Substance: ESOMEPRAZOLE MAGNESIUM
     Indication: GASTROOESOPHAGEAL REFLUX DISEASE
     Route: 048
     Dates: start: 201309, end: 201604
  17. NEXIUM [Suspect]
     Active Substance: ESOMEPRAZOLE MAGNESIUM
     Indication: GASTROOESOPHAGEAL REFLUX DISEASE
     Dosage: GENERIC
     Route: 065
     Dates: start: 201512
  18. SIROLIMUS. [Concomitant]
     Active Substance: SIROLIMUS
  19. HUMALOG [Concomitant]
     Active Substance: INSULIN LISPRO
     Dosage: 1.5 UNIT
     Route: 058
     Dates: start: 20120129
  20. NEXIUM [Suspect]
     Active Substance: ESOMEPRAZOLE MAGNESIUM
     Indication: GASTROOESOPHAGEAL REFLUX DISEASE
     Route: 048
     Dates: start: 20110724
  21. CYCLOSPORINE. [Concomitant]
     Active Substance: CYCLOSPORINE
  22. BACTRIM [Concomitant]
     Active Substance: SULFAMETHOXAZOLE\TRIMETHOPRIM
  23. APIXABAN [Concomitant]
     Active Substance: APIXABAN
     Route: 048
  24. NEXIUM [Suspect]
     Active Substance: ESOMEPRAZOLE MAGNESIUM
     Indication: GASTROOESOPHAGEAL REFLUX DISEASE
     Route: 048
     Dates: start: 20110724
  25. ZOLPIDEM [Concomitant]
     Active Substance: ZOLPIDEM\ZOLPIDEM TARTRATE
     Route: 048
     Dates: start: 20120127
  26. ZOFRAN [Concomitant]
     Active Substance: ONDANSETRON HYDROCHLORIDE
     Route: 042
     Dates: start: 20120521
  27. ATORVASTATIN [Concomitant]
     Active Substance: ATORVASTATIN
  28. NEXIUM [Suspect]
     Active Substance: ESOMEPRAZOLE MAGNESIUM
     Indication: GASTROOESOPHAGEAL REFLUX DISEASE
     Route: 048
     Dates: start: 20040328
  29. CARVEDILOL. [Concomitant]
     Active Substance: CARVEDILOL
  30. PRILOSEC [Concomitant]
     Active Substance: OMEPRAZOLE MAGNESIUM
     Route: 048
     Dates: start: 19970326
  31. PRILOSEC OTC [Concomitant]
     Active Substance: OMEPRAZOLE MAGNESIUM
     Route: 048
     Dates: start: 20060629
  32. LASIX [Concomitant]
     Active Substance: FUROSEMIDE
     Dosage: 20.0MG ONCE/SINGLE ADMINISTRATION
     Route: 042
     Dates: start: 20120523
  33. TUMS [Concomitant]
     Active Substance: CALCIUM CARBONATE
     Route: 048
     Dates: start: 20120514
  34. MORPHINE [Concomitant]
     Active Substance: MORPHINE
  35. NEXIUM [Suspect]
     Active Substance: ESOMEPRAZOLE MAGNESIUM
     Indication: GASTROOESOPHAGEAL REFLUX DISEASE
     Route: 048
     Dates: start: 2001, end: 2016
  36. NEXIUM [Suspect]
     Active Substance: ESOMEPRAZOLE MAGNESIUM
     Indication: GASTROOESOPHAGEAL REFLUX DISEASE
     Dosage: GENERIC
     Route: 065
     Dates: start: 201512
  37. NEXIUM [Suspect]
     Active Substance: ESOMEPRAZOLE MAGNESIUM
     Indication: GASTROOESOPHAGEAL REFLUX DISEASE
     Route: 048
     Dates: start: 20040328
  38. AZITHROMYCIN ANHYDROUS. [Concomitant]
     Active Substance: AZITHROMYCIN ANHYDROUS
     Route: 048
     Dates: start: 20150511
  39. PREDNISOLONE. [Concomitant]
     Active Substance: PREDNISOLONE
     Dates: start: 20151009
  40. PREDNISONE. [Concomitant]
     Active Substance: PREDNISONE
  41. ZENPEP [Concomitant]
     Active Substance: PANCRELIPASE AMYLASE\PANCRELIPASE LIPASE\PANCRELIPASE PROTEASE
  42. BUMETANIDE. [Concomitant]
     Active Substance: BUMETANIDE
  43. ALBUTEROL. [Concomitant]
     Active Substance: ALBUTEROL
  44. NEXIUM [Suspect]
     Active Substance: ESOMEPRAZOLE MAGNESIUM
     Indication: GASTROOESOPHAGEAL REFLUX DISEASE
     Route: 048
     Dates: start: 201309, end: 201604
  45. NEXIUM [Suspect]
     Active Substance: ESOMEPRAZOLE MAGNESIUM
     Indication: GASTROOESOPHAGEAL REFLUX DISEASE
     Route: 048
     Dates: start: 2001, end: 2016
  46. PEPCID [Concomitant]
     Active Substance: FAMOTIDINE
     Dates: start: 1998
  47. CEPHALEXIN. [Concomitant]
     Active Substance: CEPHALEXIN
  48. FERROUS SULFATE. [Concomitant]
     Active Substance: FERROUS SULFATE
  49. PIPERACILLIN AND TAZOBACTAM [Concomitant]
     Active Substance: PIPERACILLIN SODIUM\TAZOBACTAM SODIUM
  50. NEUPOGEN [Concomitant]
     Active Substance: FILGRASTIM
     Dosage: 5 MCG/KG
     Route: 058
     Dates: start: 20120521
  51. ASPIRIN. [Concomitant]
     Active Substance: ASPIRIN
     Route: 048

REACTIONS (5)
  - Acute kidney injury [Unknown]
  - Renal failure [Unknown]
  - Tubulointerstitial nephritis [Unknown]
  - Chronic kidney disease [Unknown]
  - Renal impairment [Unknown]

NARRATIVE: CASE EVENT DATE: 20120514
